FAERS Safety Report 4628295-X (Version None)
Quarter: 2005Q2

REPORT INFORMATION
  Report Type: 
  Country: None (occurrence: None)
  Receive Date: 20050404
  Receipt Date: 20050321
  Transmission Date: 20051028
  Serious: Yes (Other)
  Sender: FDA-Public Use
  Company Number: 2005047205

PATIENT
  Age: 70 Year
  Sex: Male

DRUGS (2)
  1. IRINOTECAN HCL [Suspect]
     Indication: GASTRIC CANCER
     Dosage: (108 MG), INTRAVENOUS
     Route: 042
     Dates: start: 20041101, end: 20041101
  2. TEGAFUR (TEGAFUR) [Suspect]
     Indication: GASTRIC CANCER
     Dosage: (100 MG), ORAL
     Route: 048
     Dates: start: 20041101, end: 20041121

REACTIONS (1)
  - HYPOKALAEMIA [None]
